FAERS Safety Report 13268130 (Version 1)
Quarter: 2017Q1

REPORT INFORMATION
  Report Type: Spontaneous
  Country: US (occurrence: US)
  Receive Date: 20170223
  Receipt Date: 20170223
  Transmission Date: 20170428
  Serious: Yes (Hospitalization)
  Sender: FDA-Public Use
  Company Number: None

PATIENT
  Age: 73 Year
  Sex: Female
  Weight: 75.75 kg

DRUGS (6)
  1. PLAVIX [Concomitant]
     Active Substance: CLOPIDOGREL BISULFATE
  2. HYDRALAZINE 10MG [Suspect]
     Active Substance: HYDRALAZINE HYDROCHLORIDE
     Indication: DIURETIC THERAPY
     Route: 048
     Dates: start: 20160604, end: 20170116
  3. IMDUR [Concomitant]
     Active Substance: ISOSORBIDE MONONITRATE
  4. PACEMAKER/ICID [Concomitant]
  5. CARVEDILOL. [Concomitant]
     Active Substance: CARVEDILOL
  6. LASIX [Concomitant]
     Active Substance: FUROSEMIDE

REACTIONS (7)
  - Rash [None]
  - Scab [None]
  - Hypersensitivity [None]
  - Asthenia [None]
  - Micturition urgency [None]
  - Pruritus [None]
  - Dyspnoea [None]

NARRATIVE: CASE EVENT DATE: 20170117
